FAERS Safety Report 4303961-4 (Version None)
Quarter: 2004Q1

REPORT INFORMATION
  Report Type: 
  Country: None (occurrence: None)
  Receive Date: 20040223
  Receipt Date: 20031116
  Transmission Date: 20041129
  Serious: No
  Sender: FDA-Public Use
  Company Number: PHEH2003US10596

PATIENT
  Sex: Male

DRUGS (2)
  1. ZELNORM [Suspect]
     Dosage: 2-4 MG/BID, ORAL
     Route: 048
  2. INSULIN [Concomitant]

REACTIONS (1)
  - HYPOGLYCAEMIA [None]
